FAERS Safety Report 4705328-3 (Version None)
Quarter: 2005Q2

REPORT INFORMATION
  Report Type: 
  Country: None (occurrence: None)
  Receive Date: 20050629
  Receipt Date: 20050614
  Transmission Date: 20051028
  Serious: Yes (Hospitalization)
  Sender: FDA-Public Use
  Company Number: 2005087924

PATIENT
  Sex: Female
  Weight: 55.7924 kg

DRUGS (3)
  1. KAOPECTATE (ATTAPULGITE) [Suspect]
     Indication: DIARRHOEA
     Dosage: RECOMMENDED DOSAGE, ORAL
     Route: 048
     Dates: end: 20050101
  2. DIURETICS (DIURETICS) [Concomitant]
  3. POTASSIUM CHLORIDE [Concomitant]

REACTIONS (1)
  - HYPOKALAEMIA [None]
